FAERS Safety Report 20758294 (Version 1)
Quarter: 2022Q2

REPORT INFORMATION
  Report Type: Spontaneous
  Country: CA (occurrence: CA)
  Receive Date: 20220427
  Receipt Date: 20220427
  Transmission Date: 20220721
  Serious: Yes (Life-Threatening, Hospitalization, Other)
  Sender: FDA-Public Use
  Company Number: CA-TEVA-2022-CA-2029640

PATIENT
  Sex: Female

DRUGS (12)
  1. IBUPROFEN [Suspect]
     Active Substance: IBUPROFEN
     Indication: Patent ductus arteriosus
     Route: 065
  2. ACETAMINOPHEN [Suspect]
     Active Substance: ACETAMINOPHEN
     Indication: Product used for unknown indication
     Route: 064
  3. CODEINE [Suspect]
     Active Substance: CODEINE
     Indication: Product used for unknown indication
     Route: 064
  4. INSULIN NOS [Suspect]
     Active Substance: INSULIN NOS
     Indication: Gestational diabetes
     Route: 064
  5. GENTAMICIN [Suspect]
     Active Substance: GENTAMICIN
     Indication: Staphylococcal infection
     Route: 065
  6. GENTAMICIN [Suspect]
     Active Substance: GENTAMICIN
     Indication: Sepsis neonatal
  7. VANCOMYCIN HYDROCHLORIDE [Suspect]
     Active Substance: VANCOMYCIN HYDROCHLORIDE
     Indication: Staphylococcal infection
     Route: 065
  8. VANCOMYCIN HYDROCHLORIDE [Suspect]
     Active Substance: VANCOMYCIN HYDROCHLORIDE
     Indication: Sepsis neonatal
  9. CAFFEINE [Concomitant]
     Active Substance: CAFFEINE
     Indication: Extubation
     Route: 065
  10. DOBUTAMINE [Concomitant]
     Active Substance: DOBUTAMINE HYDROCHLORIDE
     Indication: Hypotension
     Route: 065
  11. DOPAMINE [Concomitant]
     Active Substance: DOPAMINE HYDROCHLORIDE
     Indication: Hypotension
     Route: 065
  12. HYDROCORTISONE [Concomitant]
     Active Substance: HYDROCORTISONE
     Indication: Hypotension
     Route: 065

REACTIONS (5)
  - Foetal exposure during pregnancy [Unknown]
  - Low birth weight baby [Unknown]
  - Premature baby [Unknown]
  - Drug ineffective [Unknown]
  - Off label use [Unknown]
